FAERS Safety Report 25051465 (Version 2)
Quarter: 2025Q1

REPORT INFORMATION
  Report Type: Spontaneous
  Country: US (occurrence: US)
  Receive Date: 20250307
  Receipt Date: 20250312
  Transmission Date: 20250408
  Serious: Yes (Other)
  Sender: FERRING
  Company Number: US-MLMSERVICE-20250217-PI415171-00272-1

PATIENT

DRUGS (2)
  1. PROGESTERONE [Suspect]
     Active Substance: PROGESTERONE
     Indication: Hormone replacement therapy
     Dosage: 200 MG, DAILY
     Route: 065
  2. ESTROGENS [Concomitant]
     Active Substance: ESTROGENS
     Indication: Hormone replacement therapy
     Route: 059

REACTIONS (2)
  - Intravenous leiomyomatosis [Unknown]
  - Product use in unapproved indication [Recovered/Resolved]
